FAERS Safety Report 25467156 (Version 2)
Quarter: 2025Q2

REPORT INFORMATION
  Report Type: Spontaneous
  Country: SE (occurrence: SE)
  Receive Date: 20250623
  Receipt Date: 20250630
  Transmission Date: 20250716
  Serious: Yes (Life-Threatening, Hospitalization)
  Sender: MACLEODS
  Company Number: SE-MLMSERVICE-20250605-PI534179-00296-1

PATIENT

DRUGS (3)
  1. SILDENAFIL [Suspect]
     Active Substance: SILDENAFIL
     Indication: Pulmonary hypertension
     Route: 065
  2. NITRIC OXIDE [Suspect]
     Active Substance: NITRIC OXIDE
     Indication: Pulmonary hypertension
  3. ILOPROST [Suspect]
     Active Substance: ILOPROST
     Indication: Pulmonary hypertension

REACTIONS (1)
  - Pulmonary oedema [Recovered/Resolved]
